FAERS Safety Report 10095356 (Version 1)
Quarter: 2014Q2

REPORT INFORMATION
  Report Type: Spontaneous
  Country: FR (occurrence: FR)
  Receive Date: 20140422
  Receipt Date: 20140422
  Transmission Date: 20141212
  Serious: No
  Sender: FDA-Public Use
  Company Number: FR-ELI_LILLY_AND_COMPANY-FR201404005187

PATIENT
  Sex: Male

DRUGS (2)
  1. CIALIS [Suspect]
     Dosage: 5 MG, PRN
     Route: 048
  2. CIALIS [Suspect]
     Dosage: 10 MG, PRN

REACTIONS (4)
  - Visual impairment [Unknown]
  - Hypermetropia [Unknown]
  - Myopia [Unknown]
  - Off label use [Unknown]
